FAERS Safety Report 7942177-7 (Version None)
Quarter: 2011Q4

REPORT INFORMATION
  Report Type: 
  Country: None (occurrence: None)
  Receive Date: 20111123
  Receipt Date: 20111123
  Transmission Date: 20120403
  Serious: No
  Sender: FDA-Public Use
  Company Number: None

PATIENT
  Sex: Female
  Weight: 76.2043 kg

DRUGS (1)
  1. PRADAXA [Suspect]

REACTIONS (5)
  - CONSTIPATION [None]
  - DYSPEPSIA [None]
  - VOMITING [None]
  - ABDOMINAL PAIN UPPER [None]
  - CHEST DISCOMFORT [None]
